FAERS Safety Report 6558967-1 (Version None)
Quarter: 2010Q1

REPORT INFORMATION
  Report Type: 
  Country: None (occurrence: None)
  Receive Date: 20100129
  Receipt Date: 20100121
  Transmission Date: 20100710
  Serious: Yes (Other)
  Sender: FDA-Public Use
  Company Number: DE-AMGEN-QUU387307

PATIENT
  Sex: Male

DRUGS (1)
  1. NPLATE [Suspect]
     Indication: IDIOPATHIC THROMBOCYTOPENIC PURPURA
     Dates: start: 20090601

REACTIONS (5)
  - ANXIETY [None]
  - EPISTAXIS [None]
  - PLATELET COUNT DECREASED [None]
  - SLEEP DISORDER [None]
  - THERAPEUTIC RESPONSE DECREASED [None]
